FAERS Safety Report 4394181-6 (Version None)
Quarter: 2004Q3

REPORT INFORMATION
  Report Type: 
  Country: None (occurrence: None)
  Receive Date: 20040706
  Receipt Date: 20040622
  Transmission Date: 20050211
  Serious: Yes (Hospitalization)
  Sender: FDA-Public Use
  Company Number: US-JNJFOC-20040605734

PATIENT
  Age: 7 Year
  Sex: Male
  Weight: 21 kg

DRUGS (7)
  1. TYLENOL 8 HOUR EXTENDED RELEASE (ACETAMINOPHEN) GELTABS [Suspect]
     Indication: PAIN
     Dosage: 7800 MG, 1 IN 1 TOTAL, ORAL
     Route: 048
     Dates: start: 20040510, end: 20040512
  2. CHILDREN'S TYLENOL (ACETAMINOPHEN) [Suspect]
     Indication: PAIN
     Dosage: DOSE Q3H
     Dates: start: 20040510, end: 20040512
  3. CHILDREN'S MOTRIN GRAPE CHEWABLE (IBUPROFEN) TABLETS [Suspect]
     Indication: PAIN
     Dosage: 100 MG, 1 IN 3 HOUR, ORAL
     Route: 048
     Dates: start: 20040510, end: 20040512
  4. FLORADIL (ALL OTHER THERAPEUTIC PRODUCTS) [Concomitant]
  5. FLOVENT [Concomitant]
  6. SEREVENT [Concomitant]
  7. ALLBUTEROL MDI (SALBUTAMOL) [Concomitant]

REACTIONS (5)
  - ABDOMINAL PAIN [None]
  - ACCIDENTAL OVERDOSE [None]
  - DECREASED APPETITE [None]
  - MEDICATION ERROR [None]
  - PHARMACEUTICAL PRODUCT COMPLAINT [None]
